FAERS Safety Report 9265275 (Version 5)
Quarter: 2013Q3

REPORT INFORMATION
  Report Type: Report from Study
  Country: CA (occurrence: CA)
  Receive Date: 20130501
  Receipt Date: 20130820
  Transmission Date: 20140515
  Serious: Yes (Other)
  Sender: FDA-Public Use
  Company Number: CA-ROCHE-1137487

PATIENT
  Age: 63 Year
  Sex: Female
  Weight: 70 kg

DRUGS (12)
  1. ACTEMRA [Suspect]
     Indication: RHEUMATOID ARTHRITIS
     Route: 042
     Dates: start: 20111117, end: 20130604
  2. ACTEMRA [Suspect]
     Route: 042
     Dates: start: 20120208
  3. LOSEC (CANADA) [Suspect]
     Indication: PRODUCT USED FOR UNKNOWN INDICATION
     Route: 065
  4. CLINDAMYCIN [Suspect]
     Indication: TOOTH INFECTION
     Route: 065
     Dates: start: 2012, end: 2012
  5. NADOLOL [Concomitant]
     Indication: TREMOR
  6. ARTHROTEC [Concomitant]
     Indication: RHEUMATOID ARTHRITIS
  7. METHOTREXATE [Concomitant]
     Indication: RHEUMATOID ARTHRITIS
  8. SYMBICORT [Concomitant]
     Indication: ASTHMA
  9. NASONEX [Concomitant]
     Route: 045
  10. FOLIC ACID [Concomitant]
  11. AERIUS [Concomitant]
     Route: 065
     Dates: start: 20121002
  12. SOLU-MEDROL [Concomitant]
     Route: 065

REACTIONS (15)
  - Bacterial infection [Recovered/Resolved]
  - Haemorrhoidal haemorrhage [Not Recovered/Not Resolved]
  - Hepatic pain [Not Recovered/Not Resolved]
  - Drug hypersensitivity [Recovered/Resolved]
  - Headache [Recovered/Resolved]
  - Blood pressure increased [Recovered/Resolved]
  - Chest pain [Recovered/Resolved]
  - Tooth infection [Recovered/Resolved]
  - Rash [Not Recovered/Not Resolved]
  - Productive cough [Recovered/Resolved]
  - Abdominal pain upper [Recovered/Resolved]
  - Burning sensation [Recovering/Resolving]
  - Pain in jaw [Recovered/Resolved]
  - Back pain [Recovered/Resolved]
  - Drug effect decreased [Unknown]
